FAERS Safety Report 5404871-1 (Version None)
Quarter: 2007Q3

REPORT INFORMATION
  Report Type: 
  Country: None (occurrence: None)
  Receive Date: 20070803
  Receipt Date: 20070723
  Transmission Date: 20080115
  Serious: Yes (Other)
  Sender: FDA-Public Use
  Company Number: TH-JNJFOC-20070705304

PATIENT
  Age: 15 Year
  Sex: Male

DRUGS (2)
  1. TOPIRAMATE [Suspect]
     Indication: COMPLEX PARTIAL SEIZURES
  2. PHENYTOIN [Concomitant]
     Indication: CONVULSION

REACTIONS (4)
  - CEREBELLAR HAEMORRHAGE [None]
  - COORDINATION ABNORMAL [None]
  - DYSARTHRIA [None]
  - SOMNOLENCE [None]
